FAERS Safety Report 4649426-1 (Version None)
Quarter: 2005Q2

REPORT INFORMATION
  Report Type: 
  Country: None (occurrence: None)
  Receive Date: 20050428
  Receipt Date: 20050428
  Transmission Date: 20051028
  Serious: Yes (Death, Life-Threatening, Hospitalization)
  Sender: FDA-Public Use
  Company Number: None

PATIENT
  Age: 81 Year
  Sex: Female
  Weight: 63 kg

DRUGS (8)
  1. LOVENOX [Suspect]
     Indication: THROMBOSIS PROPHYLAXIS
     Dosage: 60MG SQ   BID
     Route: 058
     Dates: start: 20050424, end: 20050428
  2. ASPIRIN [Suspect]
     Indication: ANTIPLATELET THERAPY
     Dosage: 81MG PO Q OD    CHRONIC
     Route: 048
  3. ATIVAN [Concomitant]
  4. TOPROL-XL [Concomitant]
  5. ASPIRIN [Concomitant]
  6. ZITHROMAX [Concomitant]
  7. PROTONIX [Concomitant]
  8. DIPRIVAN [Concomitant]

REACTIONS (3)
  - COMA [None]
  - PNEUMONIA [None]
  - SUBARACHNOID HAEMORRHAGE [None]
